FAERS Safety Report 17645949 (Version 2)
Quarter: 2021Q3

REPORT INFORMATION
  Report Type: Spontaneous
  Country: US (occurrence: US)
  Receive Date: 20200408
  Receipt Date: 20210727
  Transmission Date: 20211014
  Serious: Yes (Other)
  Sender: FDA-Public Use
  Company Number: US-ASTRAZENECA-2020SE46156

PATIENT
  Age: 21395 Day
  Sex: Female
  Weight: 125.6 kg

DRUGS (52)
  1. VITAMIN D [Concomitant]
     Active Substance: VITAMIN D NOS
     Indication: BLOOD CALCIUM
     Dates: start: 20161128
  2. NORVASC [Concomitant]
     Active Substance: AMLODIPINE BESYLATE
     Dates: start: 202001
  3. FLEXERIL [Concomitant]
     Active Substance: CYCLOBENZAPRINE HYDROCHLORIDE
     Dates: start: 202001
  4. TANZEUM [Concomitant]
     Active Substance: ALBIGLUTIDE
     Dates: start: 202001
  5. OMEPRAZOLE. [Suspect]
     Active Substance: OMEPRAZOLE
     Indication: GASTROOESOPHAGEAL REFLUX DISEASE
     Route: 048
     Dates: start: 20140227
  6. ASPIRIN. [Concomitant]
     Active Substance: ASPIRIN
     Dates: start: 202001
  7. AMITIZA [Concomitant]
     Active Substance: LUBIPROSTONE
     Dates: start: 202001
  8. SODIUM CITRATE. [Concomitant]
     Active Substance: SODIUM CITRATE
     Dates: start: 202001
  9. TRULICITY [Concomitant]
     Active Substance: DULAGLUTIDE
     Dates: start: 202001
  10. OMEPRAZOLE. [Suspect]
     Active Substance: OMEPRAZOLE
     Indication: DYSPEPSIA
     Route: 065
  11. HYDRALAZINE [Concomitant]
     Active Substance: HYDRALAZINE HYDROCHLORIDE
     Indication: HYPERTENSION
     Dates: start: 20130905, end: 20190227
  12. ASCORBIC ACID. [Concomitant]
     Active Substance: ASCORBIC ACID
     Dates: start: 202001
  13. METOPROLOL SUCCINATE. [Concomitant]
     Active Substance: METOPROLOL SUCCINATE
     Dates: start: 202001
  14. AMLODIPINE BESYLATE. [Concomitant]
     Active Substance: AMLODIPINE BESYLATE
     Indication: HYPERTENSION
     Dates: start: 20130905, end: 20181009
  15. LISINOPRIL. [Concomitant]
     Active Substance: LISINOPRIL
     Indication: HYPERTENSION
     Dates: start: 20131025, end: 20190520
  16. HYDROCODONE?ACETAMINOPHEN [Concomitant]
     Active Substance: ACETAMINOPHEN\HYDROCODONE
     Indication: PAIN
     Dates: start: 20130905, end: 20131010
  17. FERROUS SULFATE. [Concomitant]
     Active Substance: FERROUS SULFATE
     Dates: start: 202001
  18. BREO ELLIPTA [Concomitant]
     Active Substance: FLUTICASONE FUROATE\VILANTEROL TRIFENATATE
     Dates: start: 202001
  19. OMEPRAZOLE. [Suspect]
     Active Substance: OMEPRAZOLE
     Indication: DYSPEPSIA
     Dosage: 20 AND 40 MG DAILY
     Route: 048
     Dates: start: 20130905, end: 20190721
  20. OMEPRAZOLE. [Suspect]
     Active Substance: OMEPRAZOLE
     Indication: GASTROOESOPHAGEAL REFLUX DISEASE
     Dosage: 20 AND 40 MG DAILY
     Route: 048
     Dates: start: 20130905, end: 20190721
  21. METFORMIN [Concomitant]
     Active Substance: METFORMIN HYDROCHLORIDE
     Indication: TYPE 2 DIABETES MELLITUS
     Dates: start: 20130905, end: 20161128
  22. LYRICA [Concomitant]
     Active Substance: PREGABALIN
     Indication: MYALGIA
     Dates: start: 20130905, end: 20140505
  23. FAMOTIDINE. [Concomitant]
     Active Substance: FAMOTIDINE
     Dates: start: 202001
  24. METOPROLOL TARTRATE. [Concomitant]
     Active Substance: METOPROLOL TARTRATE
     Dates: start: 202001
  25. BYDUREON [Concomitant]
     Active Substance: EXENATIDE
     Dates: start: 202001
  26. OMEPRAZOLE. [Suspect]
     Active Substance: OMEPRAZOLE
     Indication: GASTROOESOPHAGEAL REFLUX DISEASE
     Route: 065
  27. NIZATIDINE. [Concomitant]
     Active Substance: NIZATIDINE
  28. RANITIDINE. [Concomitant]
     Active Substance: RANITIDINE
  29. LIPITOR [Concomitant]
     Active Substance: ATORVASTATIN CALCIUM
     Dates: start: 202001
  30. PROAIR HFA [Concomitant]
     Active Substance: ALBUTEROL SULFATE
     Dates: start: 202001
  31. TRIAMCINOLONE [Concomitant]
     Active Substance: TRIAMCINOLONE
     Dates: start: 202001
  32. OMEPRAZOLE. [Suspect]
     Active Substance: OMEPRAZOLE
     Indication: DYSPEPSIA
     Route: 048
     Dates: start: 20140227
  33. METOPROLOL. [Concomitant]
     Active Substance: METOPROLOL
     Indication: HYPERTENSION
     Dates: start: 20130905, end: 20190227
  34. ACETAMINOPHEN?CODEINE [Concomitant]
     Active Substance: ACETAMINOPHEN\CODEINE PHOSPHATE
     Indication: PAIN
     Dates: start: 20150618, end: 20150720
  35. SENOKOT [Concomitant]
     Active Substance: SENNOSIDES
     Dates: start: 202001
  36. CYMBALTA [Concomitant]
     Active Substance: DULOXETINE HYDROCHLORIDE
     Dates: start: 202001
  37. VITAMIN B12 [Concomitant]
     Active Substance: CYANOCOBALAMIN
     Dates: start: 202001
  38. PERCOCET [Concomitant]
     Active Substance: ACETAMINOPHEN\OXYCODONE HYDROCHLORIDE
     Dates: start: 202001
  39. VICTOZA [Concomitant]
     Active Substance: LIRAGLUTIDE
     Dates: start: 202001
  40. ZOLPIDEM TARTRATE. [Concomitant]
     Active Substance: ZOLPIDEM TARTRATE
     Dates: start: 202001
  41. PRAVASTATIN. [Concomitant]
     Active Substance: PRAVASTATIN
     Dates: start: 202001
  42. DULOXETINE. [Concomitant]
     Active Substance: DULOXETINE
     Dates: start: 202001
  43. GLIMEPIRIDE. [Concomitant]
     Active Substance: GLIMEPIRIDE
     Dates: start: 202001
  44. PREVACID 24 HR [Suspect]
     Active Substance: LANSOPRAZOLE
     Indication: GASTROOESOPHAGEAL REFLUX DISEASE
     Route: 065
     Dates: start: 2011, end: 2016
  45. CYCLOBENZAPRINE. [Concomitant]
     Active Substance: CYCLOBENZAPRINE
     Indication: PAIN
     Dates: start: 20130905, end: 20190520
  46. AMITRIPTYLIN [Concomitant]
     Active Substance: AMITRIPTYLINE
     Dates: start: 202001
  47. COREG [Concomitant]
     Active Substance: CARVEDILOL
     Dates: start: 202001
  48. PAROXETINE. [Concomitant]
     Active Substance: PAROXETINE
     Dates: start: 202001
  49. SODIUM CHLORIDE. [Concomitant]
     Active Substance: SODIUM CHLORIDE
     Dates: start: 202001
  50. NARCAN [Concomitant]
     Active Substance: NALOXONE HYDROCHLORIDE
     Dates: start: 202001
  51. VOLTAREN [Concomitant]
     Active Substance: DICLOFENAC SODIUM
     Dates: start: 202001
  52. CALCITRIOL. [Concomitant]
     Active Substance: CALCITRIOL
     Dates: start: 202001

REACTIONS (6)
  - Acute kidney injury [Unknown]
  - Chronic kidney disease [Not Recovered/Not Resolved]
  - Chronic kidney disease-mineral and bone disorder [Unknown]
  - Renal failure [Unknown]
  - Nephrogenic anaemia [Unknown]
  - Hyperparathyroidism secondary [Unknown]

NARRATIVE: CASE EVENT DATE: 20160817
